FAERS Safety Report 10077522 (Version 1)
Quarter: 2014Q2

REPORT INFORMATION
  Report Type: Spontaneous
  Country: US (occurrence: None)
  Receive Date: 20140411
  Receipt Date: 20140411
  Transmission Date: 20141212
  Serious: Yes (Other)
  Sender: FDA-Public Use
  Company Number: AUR-APL-2014-04218

PATIENT
  Age: 35 Year
  Sex: Male

DRUGS (2)
  1. OLANZAPINE [Suspect]
     Indication: PSYCHOTIC DISORDER
     Route: 048
     Dates: start: 201302, end: 201307
  2. WARFARIN [Suspect]
     Indication: EMBOLISM

REACTIONS (4)
  - Thrombosis [None]
  - Pulmonary embolism [None]
  - Liver disorder [None]
  - Liver function test abnormal [None]
